FAERS Safety Report 8956529 (Version 1)
Quarter: 2012Q4

REPORT INFORMATION
  Report Type: Report from Study
  Country: CA (occurrence: CA)
  Receive Date: 20121210
  Receipt Date: 20121210
  Transmission Date: 20130627
  Serious: Yes (Other)
  Sender: FDA-Public Use
  Company Number: CA-JNJFOC-20121201282

PATIENT
  Age: 44 Year
  Sex: Male
  Weight: 81 kg

DRUGS (8)
  1. REMICADE [Suspect]
     Indication: CROHN^S DISEASE
     Route: 042
  2. DESYREL [Concomitant]
     Route: 065
  3. PURINETHOL [Concomitant]
     Route: 065
  4. FLURAZEPAM [Concomitant]
     Route: 065
  5. EFFEXOR [Concomitant]
     Route: 065
  6. SEROQUEL [Concomitant]
     Route: 065
  7. FLOMAX [Concomitant]
     Route: 065
  8. SODIUM CARBONATE [Concomitant]
     Route: 065

REACTIONS (4)
  - Syncope [Not Recovered/Not Resolved]
  - Head injury [Not Recovered/Not Resolved]
  - Dizziness postural [Not Recovered/Not Resolved]
  - Visual impairment [Recovered/Resolved]
